FAERS Safety Report 21874882 (Version 3)
Quarter: 2023Q4

REPORT INFORMATION
  Report Type: Spontaneous
  Country: US (occurrence: None)
  Receive Date: 20230117
  Receipt Date: 20231129
  Transmission Date: 20240110
  Serious: No
  Sender: FDA-Public Use
  Company Number: 2023A007277

PATIENT
  Sex: Female
  Weight: 59 kg

DRUGS (2)
  1. SYMBICORT [Suspect]
     Active Substance: BUDESONIDE\FORMOTEROL FUMARATE DIHYDRATE
     Indication: Asthma
     Dosage: 2 PUFFS IN THE MORNING AND 2 PUFFS IN THE EVENING
     Route: 055
     Dates: start: 202103
  2. TEZSPIRE [Suspect]
     Active Substance: TEZEPELUMAB-EKKO
     Indication: Asthma
     Route: 058
     Dates: start: 20220906

REACTIONS (7)
  - Asthma [Unknown]
  - Dyspnoea [Unknown]
  - Feeling abnormal [Unknown]
  - Chest discomfort [Unknown]
  - Device delivery system issue [Unknown]
  - Device use issue [Unknown]
  - Intentional product use issue [Unknown]
